FAERS Safety Report 24429859 (Version 1)
Quarter: 2024Q4

REPORT INFORMATION
  Report Type: Spontaneous
  Country: GB (occurrence: GB)
  Receive Date: 20241012
  Receipt Date: 20241012
  Transmission Date: 20250114
  Serious: Yes (Other)
  Sender: TEVA
  Company Number: None

PATIENT
  Age: 50 Year
  Sex: Male

DRUGS (7)
  1. FLUCONAZOLE [Suspect]
     Active Substance: FLUCONAZOLE
     Indication: Adverse drug reaction
     Dosage: UNKNOWN
     Route: 065
  2. DEXAMETHASONE [Concomitant]
     Active Substance: DEXAMETHASONE
  3. FLUOROURACIL [Concomitant]
     Active Substance: FLUOROURACIL
  4. METOCLOPRAMIDE [Concomitant]
     Active Substance: METOCLOPRAMIDE
  5. LOPERAMIDE [Concomitant]
     Active Substance: LOPERAMIDE
  6. PALONOSETRON [Concomitant]
     Active Substance: PALONOSETRON
  7. OXALIPLATIN [Concomitant]
     Active Substance: OXALIPLATIN

REACTIONS (4)
  - Hypotension [Unknown]
  - Dizziness [Unknown]
  - Abdominal pain upper [Unknown]
  - Fatigue [Unknown]

NARRATIVE: CASE EVENT DATE: 20241002
